FAERS Safety Report 17043475 (Version 1)
Quarter: 2019Q4

REPORT INFORMATION
  Report Type: Spontaneous
  Country: US (occurrence: US)
  Receive Date: 20191118
  Receipt Date: 20191118
  Transmission Date: 20200122
  Serious: No
  Sender: FDA-Public Use
  Company Number: US-THERAPEUTICSMD-2019TMD03660

PATIENT
  Age: 54 Year
  Sex: Female
  Weight: 68.93 kg

DRUGS (7)
  1. WOMENS MULTIVITAMIN [Concomitant]
  2. GLUCOSAMINE/CHONDROITIN [Concomitant]
  3. RENAVEN KIDNEY SUPPORT [Concomitant]
  4. WILD YAM [Concomitant]
  5. BLACK CURRANT SEED OIL [Concomitant]
  6. BIJUVA [Suspect]
     Active Substance: ESTRADIOL\PROGESTERONE
     Indication: HOT FLUSH
     Dosage: 1 CAPSULES, 1X/DAY
     Route: 048
     Dates: start: 20190928
  7. BIJUVA [Suspect]
     Active Substance: ESTRADIOL\PROGESTERONE
     Indication: MENOPAUSE

REACTIONS (5)
  - Drug ineffective [Not Recovered/Not Resolved]
  - Fatigue [Not Recovered/Not Resolved]
  - Hot flush [Not Recovered/Not Resolved]
  - Feeling abnormal [Not Recovered/Not Resolved]
  - Feeling of body temperature change [Not Recovered/Not Resolved]

NARRATIVE: CASE EVENT DATE: 20190929
